FAERS Safety Report 6414022-2 (Version None)
Quarter: 2009Q4

REPORT INFORMATION
  Report Type: 
  Country: None (occurrence: None)
  Receive Date: 20091026
  Receipt Date: 20091020
  Transmission Date: 20100525
  Serious: Yes (Death, Hospitalization)
  Sender: FDA-Public Use
  Company Number: PHHY2009GT45513

PATIENT
  Age: 76 Year
  Sex: Female

DRUGS (2)
  1. EXFORGE [Suspect]
     Indication: HYPERTENSION
     Dosage: 160/5 MG PER DAY
     Route: 048
     Dates: start: 20090101
  2. APPETITE STIMULANTS [Concomitant]

REACTIONS (4)
  - ANAEMIA [None]
  - DEATH [None]
  - GASTRIC CANCER [None]
  - PNEUMONIA [None]
